FAERS Safety Report 15098355 (Version 2)
Quarter: 2018Q3

REPORT INFORMATION
  Report Type: Report from Study
  Country: KZ (occurrence: KZ)
  Receive Date: 20180702
  Receipt Date: 20180709
  Transmission Date: 20181010
  Serious: Yes (Death, Other)
  Sender: FDA-Public Use
  Company Number: KZ-JNJFOC-20180638222

PATIENT
  Age: 56 Year
  Sex: Female
  Weight: 74 kg

DRUGS (2)
  1. YONDELIS [Suspect]
     Active Substance: TRABECTEDIN
     Indication: OVARIAN CANCER
     Route: 042
     Dates: start: 20171122, end: 20180409
  2. CAYELIX [Suspect]
     Active Substance: DOXORUBICIN HYDROCHLORIDE
     Indication: OVARIAN CANCER
     Route: 042
     Dates: start: 20171122, end: 20171127

REACTIONS (17)
  - Leukopenia [Recovered/Resolved]
  - Scar [Unknown]
  - Post procedural haemorrhage [None]
  - Arrhythmia [None]
  - Post procedural haemorrhage [Unknown]
  - Vomiting [Unknown]
  - Oedema peripheral [Unknown]
  - Asthenia [None]
  - Sleep disorder [None]
  - Anaemia [Not Recovered/Not Resolved]
  - Malaise [None]
  - Dry skin [None]
  - Decreased appetite [Unknown]
  - Abdominal pain lower [None]
  - Disease progression [Fatal]
  - Ascites [Unknown]
  - Body temperature increased [Unknown]

NARRATIVE: CASE EVENT DATE: 20180604
